FAERS Safety Report 9589866 (Version 1)
Quarter: 2013Q4

REPORT INFORMATION
  Report Type: Spontaneous
  Country: US (occurrence: US)
  Receive Date: 20131003
  Receipt Date: 20131003
  Transmission Date: 20140711
  Serious: No
  Sender: FDA-Public Use
  Company Number: US-AMGEN-USASP2012073198

PATIENT
  Age: 53 Year
  Sex: Female
  Weight: 135.15 kg

DRUGS (5)
  1. ENBREL [Suspect]
     Indication: PRODUCT USED FOR UNKNOWN INDICATION
     Dosage: 50 MG, QWK
     Route: 058
  2. DYAZIDE [Concomitant]
     Dosage: UNK 37.5-25
  3. INDERAL [Concomitant]
     Dosage: 10 MG, UNK
  4. CELEXA                             /00582602/ [Concomitant]
     Indication: PSORIASIS
     Dosage: 10 MG, UNK
  5. CELEXA                             /00582602/ [Concomitant]
     Indication: PSORIATIC ARTHROPATHY

REACTIONS (3)
  - Respiratory tract congestion [Unknown]
  - Upper respiratory tract infection [Unknown]
  - Nasopharyngitis [Unknown]
